FAERS Safety Report 9825635 (Version 3)
Quarter: 2015Q1

REPORT INFORMATION
  Report Type: Spontaneous
  Country: US (occurrence: US)
  Receive Date: 20140117
  Receipt Date: 20150128
  Transmission Date: 20150721
  Serious: Yes (Hospitalization, Other)
  Sender: FDA-Public Use
  Company Number: US-BAYER-2014-007966

PATIENT
  Age: 36 Year
  Sex: Female
  Weight: 85.71 kg

DRUGS (1)
  1. MIRENA [Suspect]
     Active Substance: LEVONORGESTREL
     Indication: CONTRACEPTION
     Dosage: 20 MCG/24HR, CONT
     Route: 015
     Dates: start: 200702, end: 20140411

REACTIONS (10)
  - Anxiety [None]
  - Device breakage [None]
  - Depression [None]
  - Pain [None]
  - Device difficult to use [None]
  - Menorrhagia [None]
  - Injury [None]
  - Embedded device [None]
  - Device difficult to use [None]
  - Complication of device removal [None]

NARRATIVE: CASE EVENT DATE: 200702
